FAERS Safety Report 19441138 (Version 1)
Quarter: 2021Q2

REPORT INFORMATION
  Report Type: Spontaneous
  Country: US (occurrence: US)
  Receive Date: 20210617
  Receipt Date: 20210617
  Transmission Date: 20210717
  Serious: No
  Sender: FDA-Public Use
  Company Number: None

PATIENT
  Age: 75 Year
  Sex: Female
  Weight: 66.6 kg

DRUGS (16)
  1. ZOCOR [Concomitant]
     Active Substance: SIMVASTATIN
  2. XELJANZ [Suspect]
     Active Substance: TOFACITINIB CITRATE
     Indication: PRODUCT USED FOR UNKNOWN INDICATION
     Dosage: ?          QUANTITY:1 TABLET(S);?
     Route: 048
     Dates: start: 20200409, end: 20210617
  3. XELJANZ [Concomitant]
     Active Substance: TOFACITINIB CITRATE
  4. CALTRATE [Concomitant]
     Active Substance: CALCIUM CARBONATE
  5. OPTIMIZED FOLATE [Concomitant]
  6. OMEGA 3 [Concomitant]
     Active Substance: OMEGA-3 FATTY ACIDS
  7. VITAMIN B12 [Concomitant]
     Active Substance: CYANOCOBALAMIN
  8. CRANBERRY PILLS [Concomitant]
  9. FISH OIL [Concomitant]
     Active Substance: FISH OIL
  10. METOPROLOL ER [Concomitant]
     Active Substance: METOPROLOL SUCCINATE
  11. PRESERVISION [Concomitant]
     Active Substance: MINERALS\VITAMINS
  12. AREDS2 AZO [Concomitant]
  13. SPIRINOLACTONE [Concomitant]
     Active Substance: SPIRONOLACTONE
  14. VITAMIN D3 [Concomitant]
     Active Substance: CHOLECALCIFEROL
  15. ACYCLOVIR. [Concomitant]
     Active Substance: ACYCLOVIR
  16. COENZYME Q10 [Concomitant]
     Active Substance: DIETARY SUPPLEMENT\UBIDECARENONE

REACTIONS (2)
  - Acne cystic [None]
  - Weight increased [None]

NARRATIVE: CASE EVENT DATE: 20210517
